FAERS Safety Report 14300435 (Version 2)
Quarter: 2018Q3

REPORT INFORMATION
  Report Type: Spontaneous
  Country: ES (occurrence: ES)
  Receive Date: 20171219
  Receipt Date: 20180710
  Transmission Date: 20181010
  Serious: Yes (Hospitalization)
  Sender: FDA-Public Use
  Company Number: ES-ASTRAZENECA-2017SF23893

PATIENT
  Age: 71 Year
  Sex: Male

DRUGS (2)
  1. ADIRO [Interacting]
     Active Substance: ASPIRIN
     Dosage: 100 UG/ INHALATIONS, DAILY
     Route: 048
     Dates: start: 20170522, end: 20170606
  2. BRILIQUE [Suspect]
     Active Substance: TICAGRELOR
     Route: 048
     Dates: start: 20170510, end: 20170606

REACTIONS (1)
  - Subdural haematoma [Recovered/Resolved]

NARRATIVE: CASE EVENT DATE: 20170606
